FAERS Safety Report 9701853 (Version 4)
Quarter: 2015Q2

REPORT INFORMATION
  Report Type: Spontaneous
  Country: BR (occurrence: BR)
  Receive Date: 20131121
  Receipt Date: 20150401
  Transmission Date: 20150821
  Serious: Yes (Other)
  Sender: FDA-Public Use
  Company Number: PHHY2013BR133545

PATIENT
  Age: 82 Year
  Sex: Female
  Weight: 44 kg

DRUGS (5)
  1. DIMETHICONE. [Concomitant]
     Active Substance: DIMETHICONE
     Indication: DIVERTICULITIS
     Dosage: 1 DF, QD
     Route: 048
  2. VALIUM [Concomitant]
     Active Substance: DIAZEPAM
     Indication: INSOMNIA
     Dosage: 1 DF, QD (AT NIGHT)
     Route: 048
  3. FLORATIL [Concomitant]
     Indication: DIVERTICULITIS
     Dosage: 1 DF, QD
     Route: 048
  4. SELOZOK [Concomitant]
     Active Substance: METOPROLOL SUCCINATE
     Indication: HYPERTENSION
     Dosage: 1 DF BID (IN THE MORNING AND AT NIGHT)
     Route: 048
  5. DIOVAN HCT [Suspect]
     Active Substance: HYDROCHLOROTHIAZIDE\VALSARTAN
     Indication: HYPERTENSION
     Dosage: 1 DF, BID (IN THE MORNING AND AT NIGHT)
     Route: 048
     Dates: start: 2011

REACTIONS (3)
  - Genital herpes [Recovered/Resolved]
  - Meningoencephalitis herpetic [Recovered/Resolved]
  - Breast cancer [Recovered/Resolved]

NARRATIVE: CASE EVENT DATE: 201307
